FAERS Safety Report 24056780 (Version 1)
Quarter: 2024Q3

REPORT INFORMATION
  Report Type: Report from Study
  Country: US (occurrence: US)
  Receive Date: 20240705
  Receipt Date: 20240705
  Transmission Date: 20241017
  Serious: Yes (Other)
  Sender: ABBVIE
  Company Number: US-ABBVIE-5828044

PATIENT
  Age: 67 Year
  Sex: Male

DRUGS (1)
  1. SKYRIZI [Suspect]
     Active Substance: RISANKIZUMAB-RZAA
     Indication: Product used for unknown indication
     Route: 058
     Dates: start: 202303

REACTIONS (2)
  - Pneumonia [Recovered/Resolved]
  - Lung abscess [Recovered/Resolved]

NARRATIVE: CASE EVENT DATE: 20231101
